FAERS Safety Report 7294460-9 (Version None)
Quarter: 2011Q1

REPORT INFORMATION
  Report Type: 
  Country: None (occurrence: None)
  Receive Date: 20110216
  Receipt Date: 20110207
  Transmission Date: 20110831
  Serious: Yes (Death, Hospitalization)
  Sender: FDA-Public Use
  Company Number: US-BIOGENIDEC-2010BI044819

PATIENT
  Sex: Female
  Weight: 49 kg

DRUGS (26)
  1. HYDROCODONE [Concomitant]
     Indication: BREAKTHROUGH PAIN
  2. NICOTINE PATCH [Concomitant]
     Route: 062
  3. OMEPRAZOLE [Concomitant]
  4. LOVENOX [Concomitant]
     Route: 058
  5. DONEPEZIL HCL [Concomitant]
  6. ACETAMINOPHEN [Concomitant]
  7. DULOXETINE [Concomitant]
     Indication: PAIN
  8. DULOXETINE [Concomitant]
     Indication: DEPRESSION
  9. MAGNESIUM SULFATE [Concomitant]
  10. SODIUM PHOSPHATE [Concomitant]
  11. MILK OF MAGNESIA TAB [Concomitant]
  12. ACETAMINOPHEN [Concomitant]
     Indication: BREAKTHROUGH PAIN
  13. MACROBID [Concomitant]
     Indication: PROPHYLAXIS URINARY TRACT INFECTION
  14. CALCIUM GLUCONATE [Concomitant]
  15. BACLOFEN [Concomitant]
     Route: 048
  16. COLACE [Concomitant]
  17. FENTANYL [Concomitant]
     Route: 062
  18. FENTANYL [Concomitant]
     Route: 062
  19. INFLUENZA VACCINE [Concomitant]
  20. POTASSIUM CHLORIDE [Concomitant]
  21. FENTANYL [Concomitant]
     Route: 042
  22. DULCOLAX [Concomitant]
     Route: 054
  23. PROCALAMINE [Concomitant]
  24. MORPHINE [Concomitant]
  25. TYSABRI [Suspect]
     Indication: MULTIPLE SCLEROSIS
     Route: 042
     Dates: start: 20070830, end: 20100810
  26. SODIUM PHOSPHATE [Concomitant]
     Route: 054

REACTIONS (6)
  - URINARY TRACT INFECTION [None]
  - MULTIPLE SCLEROSIS RELAPSE [None]
  - FALL [None]
  - PAIN IN EXTREMITY [None]
  - MULTIPLE SCLEROSIS [None]
  - GRAND MAL CONVULSION [None]
